FAERS Safety Report 16879750 (Version 3)
Quarter: 2019Q4

REPORT INFORMATION
  Report Type: Spontaneous
  Country: VE (occurrence: VE)
  Receive Date: 20191003
  Receipt Date: 20191203
  Transmission Date: 20200122
  Serious: Yes (Other)
  Sender: FDA-Public Use
  Company Number: VE-PFIZER INC-2019423959

PATIENT
  Age: 8 Year
  Sex: Female

DRUGS (1)
  1. SOMATROPIN. [Suspect]
     Active Substance: SOMATROPIN
     Indication: GROWTH HORMONE DEFICIENCY
     Dosage: 90.72 MG (DOSE AS REPORTED), UNK

REACTIONS (3)
  - Precocious puberty [Unknown]
  - Renal tubular dysfunction [Unknown]
  - Haemolytic anaemia [Unknown]
